FAERS Safety Report 9443024 (Version 1)
Quarter: 2013Q3

REPORT INFORMATION
  Report Type: Report from Study
  Country: BR (occurrence: BR)
  Receive Date: 20130806
  Receipt Date: 20130806
  Transmission Date: 20140515
  Serious: Yes (Hospitalization, Other)
  Sender: FDA-Public Use
  Company Number: PHHY2013BR083620

PATIENT
  Sex: Female

DRUGS (10)
  1. STALEVO [Suspect]
     Indication: PARKINSON^S DISEASE
     Dosage: 5 DF, A DAY (50 MG)
     Route: 048
  2. STALEVO [Suspect]
     Dosage: 5 DF, A DAY (100 MG)
     Route: 048
  3. STALEVO [Suspect]
     Dosage: 4 DF, A DAY
     Route: 048
     Dates: start: 20130731
  4. CYMBALTA [Concomitant]
     Indication: DEPRESSION
     Dosage: 1 DF, A DAY
     Route: 048
  5. PLAKETAR [Concomitant]
     Indication: ANTICOAGULANT THERAPY
     Dosage: 1 DF, A DAY
     Route: 048
  6. REMINYL ER [Concomitant]
     Indication: DEMENTIA ALZHEIMER^S TYPE
     Dosage: 1 DF,  A DAY
     Route: 048
  7. ATENOLOL [Concomitant]
     Indication: BLOOD PRESSURE
     Dosage: 2 DF, 1 DF (IN THE MORNING) AND 1 DF (AT AFTERNOON)
     Route: 048
  8. DORMONID [Concomitant]
     Indication: SLEEP DISORDER
     Dosage: 1 DF, UNK (AT NIGHT)
     Route: 048
  9. COMBIRON [Concomitant]
     Indication: BLOOD IRON ABNORMAL
     Dosage: 1 DF, UNK
     Route: 048
  10. CALCIUM [Concomitant]
     Indication: BONE DISORDER
     Dosage: UNK UKN, UNK

REACTIONS (1)
  - Pneumonia [Recovered/Resolved]
